FAERS Safety Report 6190139-5 (Version None)
Quarter: 2009Q2

REPORT INFORMATION
  Report Type: 
  Country: None (occurrence: None)
  Receive Date: 20090514
  Receipt Date: 20090511
  Transmission Date: 20091009
  Serious: Yes (Hospitalization, Other)
  Sender: FDA-Public Use
  Company Number: IE-ABBOTT-09P-229-0568518-00

PATIENT
  Age: 70 Year
  Sex: Male

DRUGS (1)
  1. HUMIRA [Suspect]
     Indication: PSORIASIS
     Route: 058
     Dates: start: 20090305

REACTIONS (5)
  - BLISTER [None]
  - DERMATITIS EXFOLIATIVE [None]
  - RASH ERYTHEMATOUS [None]
  - RASH GENERALISED [None]
  - SWELLING FACE [None]
